FAERS Safety Report 6490139-1 (Version None)
Quarter: 2009Q4

REPORT INFORMATION
  Report Type: 
  Country: None (occurrence: None)
  Receive Date: 20091211
  Receipt Date: 20090617
  Transmission Date: 20100525
  Serious: No
  Sender: FDA-Public Use
  Company Number: A0792046A

PATIENT
  Age: 60 Year
  Sex: Female

DRUGS (2)
  1. FLONASE [Suspect]
     Indication: MULTIPLE ALLERGIES
     Route: 045
     Dates: start: 20050101, end: 20060101
  2. LIPITOR [Concomitant]

REACTIONS (1)
  - SNEEZING [None]
